FAERS Safety Report 20378813 (Version 1)
Quarter: 2022Q1

REPORT INFORMATION
  Report Type: Spontaneous
  Country: CA (occurrence: CA)
  Receive Date: 20220126
  Receipt Date: 20220126
  Transmission Date: 20220423
  Serious: Yes (Death)
  Sender: FDA-Public Use
  Company Number: CA-PFIZER INC-202200015408

PATIENT
  Age: 60 Year
  Sex: Female

DRUGS (3)
  1. BRAFTOVI [Suspect]
     Active Substance: ENCORAFENIB
  2. MEKTOVI [Suspect]
     Active Substance: BINIMETINIB
     Dosage: UNK
  3. CETUXIMAB [Concomitant]
     Active Substance: CETUXIMAB

REACTIONS (1)
  - Death [Fatal]
